FAERS Safety Report 4370671-7 (Version None)
Quarter: 2004Q2

REPORT INFORMATION
  Report Type: 
  Country: None (occurrence: None)
  Receive Date: 20040526
  Receipt Date: 20040517
  Transmission Date: 20050107
  Serious: Yes (Hospitalization, Other)
  Sender: FDA-Public Use
  Company Number: HQWYE004019MAY04

PATIENT
  Age: 25 Year
  Sex: Female

DRUGS (5)
  1. EFFEXOR XR [Suspect]
     Indication: PAIN
     Dosage: SEE IMAGE
     Route: 048
     Dates: start: 20040328, end: 20040101
  2. EFFEXOR XR [Suspect]
     Indication: PAIN
     Dosage: SEE IMAGE
     Route: 048
     Dates: start: 20030901, end: 20040327
  3. EFFEXOR XR [Suspect]
     Indication: PAIN
     Dosage: SEE IMAGE
     Route: 048
     Dates: start: 20040101
  4. TRAMAL (TRAMADOL HYDROCHLORIDE, ) [Suspect]
     Dosage: SEE IMAGE
     Route: 048
     Dates: start: 20030801, end: 20040101
  5. TRAMAL (TRAMADOL HYDROCHLORIDE, ) [Suspect]
     Dosage: SEE IMAGE
     Route: 048
     Dates: start: 20040101, end: 20040101

REACTIONS (4)
  - CONFUSIONAL STATE [None]
  - COORDINATION ABNORMAL [None]
  - FALL [None]
  - INCOHERENT [None]
